FAERS Safety Report 5087411-9 (Version None)
Quarter: 2006Q3

REPORT INFORMATION
  Report Type: 
  Country: None (occurrence: None)
  Receive Date: 20060824
  Receipt Date: 20060809
  Transmission Date: 20061208
  Serious: Yes (Other)
  Sender: FDA-Public Use
  Company Number: JP-AVENTIS-200612515JP

PATIENT
  Age: 79 Year
  Sex: Female

DRUGS (8)
  1. AMARYL [Suspect]
     Route: 048
  2. THYRADIN [Concomitant]
     Route: 048
  3. ADALAT [Concomitant]
     Route: 048
  4. BERIZYM [Concomitant]
     Route: 048
  5. MAGNESIUM OXIDE [Concomitant]
     Route: 048
  6. MYSLEE [Concomitant]
     Route: 048
  7. BUP-4 [Concomitant]
     Route: 048
  8. BLADDERON [Concomitant]
     Route: 048

REACTIONS (1)
  - HYPOKALAEMIA [None]
